FAERS Safety Report 20414599 (Version 3)
Quarter: 2022Q1

REPORT INFORMATION
  Report Type: Other
  Country: JP (occurrence: JP)
  Receive Date: 20220202
  Receipt Date: 20220314
  Transmission Date: 20220423
  Serious: No
  Sender: FDA-Public Use
  Company Number: JP-CHUGAI-2022001807AA

PATIENT
  Age: 62 Year
  Sex: Female
  Weight: 43.8 kg

DRUGS (5)
  1. SATRALIZUMAB [Suspect]
     Active Substance: SATRALIZUMAB
     Indication: Neuromyelitis optica spectrum disorder
     Route: 058
     Dates: start: 20210316, end: 20210416
  2. SATRALIZUMAB [Suspect]
     Active Substance: SATRALIZUMAB
     Route: 058
     Dates: start: 20210514
  3. PREDONINE [Suspect]
     Active Substance: PREDNISOLONE
     Indication: Neuromyelitis optica spectrum disorder
     Route: 048
     Dates: start: 20210316
  4. PREDONINE [Suspect]
     Active Substance: PREDNISOLONE
     Dosage: 8MG/DAY
     Route: 048
     Dates: start: 2021
  5. TACROLIMUS [Suspect]
     Active Substance: TACROLIMUS
     Indication: Neuromyelitis optica spectrum disorder
     Route: 065

REACTIONS (4)
  - Malaise [Recovering/Resolving]
  - Chest pain [Recovered/Resolved]
  - High density lipoprotein increased [Not Recovered/Not Resolved]
  - Low density lipoprotein increased [Not Recovered/Not Resolved]

NARRATIVE: CASE EVENT DATE: 20210316
